FAERS Safety Report 16264855 (Version 1)
Quarter: 2019Q2

REPORT INFORMATION
  Report Type: Spontaneous
  Country: US (occurrence: US)
  Receive Date: 20190502
  Receipt Date: 20190502
  Transmission Date: 20190711
  Serious: Yes (Hospitalization, Other)
  Sender: FDA-Public Use
  Company Number: US-PFIZER INC-2019184585

PATIENT
  Age: 63 Year
  Sex: Male

DRUGS (4)
  1. BUMEX [Concomitant]
     Active Substance: BUMETANIDE
     Indication: CORONARY ARTERY DISEASE
  2. DOFETILIDE. [Suspect]
     Active Substance: DOFETILIDE
     Indication: CORONARY ARTERY DISEASE
  3. DOFETILIDE. [Suspect]
     Active Substance: DOFETILIDE
     Indication: ATRIAL FIBRILLATION
     Dosage: UNK
  4. BUMEX [Concomitant]
     Active Substance: BUMETANIDE
     Indication: ATRIAL FIBRILLATION
     Dosage: UNK

REACTIONS (2)
  - Ventricular tachycardia [Recovered/Resolved]
  - Toxicity to various agents [Recovered/Resolved]
